FAERS Safety Report 23082146 (Version 3)
Quarter: 2023Q4

REPORT INFORMATION
  Report Type: Spontaneous
  Country: US (occurrence: US)
  Receive Date: 20231019
  Receipt Date: 20231107
  Transmission Date: 20240110
  Serious: Yes (Hospitalization, Other)
  Sender: FDA-Public Use
  Company Number: US-MLMSERVICE-20231010-4590882-1

PATIENT
  Age: 5 Year
  Sex: Male

DRUGS (17)
  1. AMPHOTERICIN B [Suspect]
     Active Substance: AMPHOTERICIN B
     Indication: Fusarium infection
     Dosage: UNK
     Route: 065
  2. FLUCONAZOLE [Suspect]
     Active Substance: FLUCONAZOLE
     Indication: Fusarium infection
     Dosage: 100 MILLIGRAM, ONCE A DAY
     Route: 048
  3. TOBRAMYCIN [Suspect]
     Active Substance: TOBRAMYCIN
     Indication: Enterobacter infection
     Dosage: 1 GTT DROPS, EVERY FOUR HOUR (EACH 1 DROP EVERY 4 HOURS)
     Route: 065
  4. TOBRAMYCIN [Suspect]
     Active Substance: TOBRAMYCIN
     Indication: Diphtheria
  5. TOBRAMYCIN [Suspect]
     Active Substance: TOBRAMYCIN
     Indication: Bacillus infection
  6. VANCOMYCIN [Suspect]
     Active Substance: VANCOMYCIN
     Indication: Bacillus infection
     Dosage: UNK (100 MG/L FOR 10 MINUTES, FLUSH FOR 2.5 MINUTES; THIS WAS REPEATED HOURLY AROUND THE CLOCK)
     Route: 065
  7. VANCOMYCIN [Suspect]
     Active Substance: VANCOMYCIN
     Indication: Enterobacter infection
     Dosage: UNK
     Route: 042
  8. VANCOMYCIN [Suspect]
     Active Substance: VANCOMYCIN
     Indication: Diphtheria
  9. AMPHOTERICIN B [Suspect]
     Active Substance: AMPHOTERICIN B
     Indication: Product used for unknown indication
     Dosage: UNK (TOPICAL INFUSIONS: AMPHOTERICIN B 0.1% FOR 15 MINUTES, FLUSH FOR 5 MINUTES. THIS WAS REPEATED H
     Route: 065
  10. GENTAMICIN [Suspect]
     Active Substance: GENTAMICIN
     Indication: Bacillus infection
     Dosage: UNK , EVERY 1 HR(100 MG/L FOR 10 MINUTES, FLUSH FOR 5 MINUTES; THIS WAS REPEATED HOURLY AROUND THE C
     Route: 065
  11. GENTAMICIN [Suspect]
     Active Substance: GENTAMICIN
     Indication: Enterobacter infection
  12. GENTAMICIN [Suspect]
     Active Substance: GENTAMICIN
     Indication: Diphtheria
  13. MICONAZOLE [Suspect]
     Active Substance: MICONAZOLE
     Indication: Fusarium infection
     Dosage: UNK, EVERY 1 HR (1% FOR 10 MINUTES, FLUSH FOR 2.5 MINUTES; THIS WAS REPEATED HOURLY AROUND THE CLOCK
     Route: 065
  14. MICONAZOLE [Suspect]
     Active Substance: MICONAZOLE
     Dosage: 1 DROP, EVERY 4 HRS
     Route: 065
  15. CEFTAZIDIME [Suspect]
     Active Substance: CEFTAZIDIME
     Indication: Bacillus infection
     Dosage: UNK
     Route: 042
  16. CEFTAZIDIME [Suspect]
     Active Substance: CEFTAZIDIME
     Indication: Enterobacter infection
  17. CEFTAZIDIME [Suspect]
     Active Substance: CEFTAZIDIME
     Indication: Diphtheria

REACTIONS (3)
  - Infective corneal ulcer [Recovered/Resolved]
  - Infective keratitis [Recovered/Resolved]
  - Candida infection [Recovered/Resolved]
